FAERS Safety Report 8986424 (Version 7)
Quarter: 2014Q2

REPORT INFORMATION
  Report Type: Report from Study
  Country: DE (occurrence: DE)
  Receive Date: 20121226
  Receipt Date: 20140407
  Transmission Date: 20141212
  Serious: Yes (Hospitalization)
  Sender: FDA-Public Use
  Company Number: DE-ROCHE-1170840

PATIENT
  Age: 53 Year
  Sex: Female

DRUGS (17)
  1. PEG-INTERFERON ALFA 2A [Suspect]
     Indication: HEPATITIS C
     Route: 058
     Dates: start: 20121121
  2. RIBAVIRIN [Suspect]
     Indication: HEPATITIS C
     Route: 048
     Dates: start: 20121121
  3. INCIVO [Suspect]
     Indication: HEPATITIS C
     Route: 048
     Dates: start: 20121121
  4. RAMIPRIL [Concomitant]
     Indication: HYPERTENSION
     Route: 048
  5. AMLODIPIN [Concomitant]
     Indication: HYPERTENSION
     Route: 048
  6. BISOPROLOL [Concomitant]
     Indication: HYPERTENSION
     Route: 048
  7. CLONIDINE [Concomitant]
     Indication: HYPERTENSION
     Route: 048
  8. CANDESARTAN [Concomitant]
     Indication: HYPERTENSION
     Route: 048
  9. CYNT (GERMANY) [Concomitant]
     Route: 065
  10. TORASEMID [Concomitant]
     Dosage: 2-1-0
     Route: 065
  11. BICANORM [Concomitant]
     Dosage: 2-2-2
     Route: 065
  12. ROCALTROL [Concomitant]
     Route: 065
  13. L-THYROXIN [Concomitant]
     Route: 065
  14. HYDROCHLOROTHIAZIDE [Concomitant]
     Route: 065
  15. LONOLOX [Concomitant]
     Dosage: 2-0-1
     Route: 065
  16. BLOPRESS [Concomitant]
     Dosage: 1-0-1
     Route: 065
  17. OMEPRAZOLE [Concomitant]
     Dosage: 1-0-0
     Route: 065

REACTIONS (4)
  - Urinary tract infection [Recovered/Resolved]
  - Dehydration [Recovered/Resolved]
  - Anaemia [Recovered/Resolved]
  - Renal failure [Recovered/Resolved]
